FAERS Safety Report 18244306 (Version 4)
Quarter: 2020Q4

REPORT INFORMATION
  Report Type: Report from Study
  Country: US (occurrence: US)
  Receive Date: 20200908
  Receipt Date: 20201020
  Transmission Date: 20210113
  Serious: Yes (Life-Threatening)
  Sender: FDA-Public Use
  Company Number: NVSC2020US235810

PATIENT
  Age: 62 Year
  Sex: Male

DRUGS (4)
  1. INC424 [Suspect]
     Active Substance: RUXOLITINIB
     Indication: COVID-19
     Dosage: UNK
     Route: 048
     Dates: start: 20200814, end: 20200820
  2. ATORVASTATIN [Suspect]
     Active Substance: ATORVASTATIN
     Indication: HYPERLIPIDAEMIA
     Dosage: 40 MG, QD
     Route: 065
     Dates: start: 2010, end: 20200820
  3. TYLENOL [Suspect]
     Active Substance: ACETAMINOPHEN
     Indication: PAIN
     Dosage: 650 MG, PRN
     Route: 065
     Dates: start: 20200813, end: 20200820
  4. INC424 [Suspect]
     Active Substance: RUXOLITINIB
     Indication: ACUTE RESPIRATORY DISTRESS SYNDROME
     Dosage: UNK
     Route: 048
     Dates: start: 20200820, end: 20200821

REACTIONS (4)
  - Blood alkaline phosphatase increased [Recovered/Resolved]
  - Alanine aminotransferase increased [Recovered/Resolved]
  - Aspartate aminotransferase increased [Recovered/Resolved]
  - Alanine aminotransferase increased [Recovered/Resolved]

NARRATIVE: CASE EVENT DATE: 20200820
